FAERS Safety Report 5097499-7 (Version None)
Quarter: 2006Q3

REPORT INFORMATION
  Report Type: 
  Country: None (occurrence: None)
  Receive Date: 20060901
  Receipt Date: 20060816
  Transmission Date: 20061208
  Serious: Yes (Other)
  Sender: FDA-Public Use
  Company Number: 2006RR-03512

PATIENT
  Sex: Female
  Weight: 62 kg

DRUGS (3)
  1. TERBINAFINE [Suspect]
     Indication: ONYCHOMYCOSIS
     Dosage: QD, ORAL
     Route: 048
     Dates: start: 20060329, end: 20060512
  2. CO-AMOXICLAV (CLAVULANIC ACID, AMOXICILLIN TRIHYDRATE) [Concomitant]
  3. TIOCONAZOL [Concomitant]

REACTIONS (2)
  - DYSGEUSIA [None]
  - EATING DISORDER [None]
